FAERS Safety Report 5934567-9 (Version None)
Quarter: 2008Q4

REPORT INFORMATION
  Report Type: 
  Country: None (occurrence: None)
  Receive Date: 20081029
  Receipt Date: 20081017
  Transmission Date: 20090506
  Serious: Yes (Other)
  Sender: FDA-Public Use
  Company Number: US-PFIZER INC-2008081862

PATIENT
  Sex: Female
  Weight: 71.2 kg

DRUGS (13)
  1. LYRICA [Suspect]
     Indication: BACK PAIN
     Route: 048
     Dates: start: 20080924, end: 20080925
  2. SOMA [Concomitant]
  3. IBUPROFEN TABLETS [Concomitant]
  4. PROZAC [Concomitant]
  5. ALLEGRA [Concomitant]
     Indication: HYPERSENSITIVITY
  6. PULMICORT-100 [Concomitant]
  7. XOPENEX [Concomitant]
  8. VERAMYST [Concomitant]
  9. NEXIUM [Concomitant]
  10. CALCIUM [Concomitant]
  11. ASCORBIC ACID [Concomitant]
  12. VITAMINS [Concomitant]
  13. ALL OTHER THERAPEUTIC PRODUCTS [Concomitant]

REACTIONS (4)
  - ABNORMAL SENSATION IN EYE [None]
  - DRUG INEFFECTIVE [None]
  - EYE PAIN [None]
  - HEADACHE [None]
